FAERS Safety Report 6045016-7 (Version None)
Quarter: 2009Q1

REPORT INFORMATION
  Report Type: 
  Country: None (occurrence: None)
  Receive Date: 20090121
  Receipt Date: 20090115
  Transmission Date: 20090719
  Serious: Yes (Death)
  Sender: FDA-Public Use
  Company Number: US-BRISTOL-MYERS SQUIBB COMPANY-14472989

PATIENT
  Age: 50 Year
  Sex: Female

DRUGS (7)
  1. PRAVASTATIN SODIUM [Suspect]
     Route: 048
  2. MORPHINE [Suspect]
     Route: 048
  3. BENZODIAZEPINE [Suspect]
     Route: 048
  4. FUROSEMIDE [Suspect]
     Route: 048
  5. QUINAPRIL [Suspect]
     Route: 048
  6. BACLOFEN [Suspect]
     Route: 048
  7. PREGABALIN [Suspect]
     Route: 048

REACTIONS (1)
  - DRUG TOXICITY [None]
